FAERS Safety Report 6818207-2 (Version None)
Quarter: 2010Q3

REPORT INFORMATION
  Report Type: 
  Country: None (occurrence: None)
  Receive Date: 20100706
  Receipt Date: 20070306
  Transmission Date: 20110219
  Serious: No
  Sender: FDA-Public Use
  Company Number: US-PFIZER INC-2007019360

PATIENT
  Sex: Female
  Weight: 100.7 kg

DRUGS (7)
  1. AZITHROMYCIN [Suspect]
     Indication: SINUSITIS
     Route: 048
     Dates: start: 20070108, end: 20070112
  2. ALLEGRA [Concomitant]
  3. ARIMIDEX [Concomitant]
  4. TAPAZOLE [Concomitant]
  5. ZANTAC [Concomitant]
  6. FIORINAL [Concomitant]
  7. DALMANE [Concomitant]

REACTIONS (2)
  - DIZZINESS [None]
  - HEADACHE [None]
